FAERS Safety Report 8134624-5 (Version None)
Quarter: 2012Q1

REPORT INFORMATION
  Report Type: 
  Country: None (occurrence: None)
  Receive Date: 20120214
  Receipt Date: 20111220
  Transmission Date: 20120608
  Serious: No
  Sender: FDA-Public Use
  Company Number: US-PFIZER INC-2012035868

PATIENT
  Sex: Female
  Weight: 51 kg

DRUGS (8)
  1. FISH OIL [Concomitant]
  2. OMEPRAZOLE [Concomitant]
     Indication: HYPERCHLORHYDRIA
     Dosage: 20 MG, DAILY
  3. FLECTOR [Suspect]
     Indication: BACK PAIN
     Dosage: 1 DF, 2X/DAY
     Route: 061
     Dates: start: 20111208, end: 20111208
  4. PLAVIX [Concomitant]
     Dosage: 75 MG, DAILY
  5. LIPITOR [Concomitant]
     Dosage: 80 MG, DAILY
  6. KLONOPIN [Concomitant]
     Indication: SLEEP DISORDER
     Dosage: 0.5 MG, DAILY
  7. LISINOPRIL [Concomitant]
     Indication: HYPERTENSION
     Dosage: 5 MG, DAILY
  8. LEVOTHYROXINE [Concomitant]
     Indication: HYPOTHYROIDISM
     Dosage: 0.05 UG, DAILY

REACTIONS (5)
  - HYPERSENSITIVITY [None]
  - ERYTHEMA [None]
  - OEDEMA [None]
  - RASH [None]
  - PRURITUS [None]
